FAERS Safety Report 13708364 (Version 4)
Quarter: 2017Q3

REPORT INFORMATION
  Report Type: Report from Study
  Country: None (occurrence: NZ)
  Receive Date: 20170630
  Receipt Date: 20170926
  Transmission Date: 20171127
  Serious: Yes (Other)
  Sender: FDA-Public Use
  Company Number: NZ-ABBVIE-17K-118-2019283-00

PATIENT
  Age: 25 Year
  Sex: Female

DRUGS (2)
  1. HUMIRA [Suspect]
     Active Substance: ADALIMUMAB
     Indication: CROHN^S DISEASE
     Route: 058
     Dates: start: 20170511
  2. DEPO-PROVERA [Concomitant]
     Active Substance: MEDROXYPROGESTERONE ACETATE
     Indication: PRODUCT USED FOR UNKNOWN INDICATION
     Dates: end: 2017

REACTIONS (7)
  - Incorrect dose administered [Unknown]
  - Intentional product misuse [Unknown]
  - Injection site reaction [Not Recovered/Not Resolved]
  - Fear of injection [Unknown]
  - Wrong technique in product usage process [Unknown]
  - Precancerous cells present [Unknown]
  - Stress [Unknown]

NARRATIVE: CASE EVENT DATE: 2017
